FAERS Safety Report 7767312-5 (Version None)
Quarter: 2011Q3

REPORT INFORMATION
  Report Type: 
  Country: None (occurrence: None)
  Receive Date: 20110922
  Receipt Date: 20110323
  Transmission Date: 20111222
  Serious: No
  Sender: FDA-Public Use
  Company Number: US-ASTRAZENECA-2011SE16643

PATIENT
  Age: 31 Year
  Sex: Male
  Weight: 115.7 kg

DRUGS (6)
  1. LUVOX [Concomitant]
  2. NEURONTIN [Concomitant]
  3. SEROQUEL XR [Suspect]
     Indication: BIPOLAR I DISORDER
     Route: 048
     Dates: start: 20090401
  4. LAMICTAL [Concomitant]
  5. KLONAZEPAM [Concomitant]
  6. SEROQUEL XR [Suspect]
     Route: 048

REACTIONS (5)
  - NO ADVERSE EVENT [None]
  - SLEEP DISORDER [None]
  - THERAPEUTIC RESPONSE UNEXPECTED [None]
  - SLEEP TALKING [None]
  - ABNORMAL DREAMS [None]
